FAERS Safety Report 23065635 (Version 2)
Quarter: 2023Q4

REPORT INFORMATION
  Report Type: Spontaneous
  Country: US (occurrence: US)
  Receive Date: 20231014
  Receipt Date: 20231019
  Transmission Date: 20240109
  Serious: No
  Sender: FDA-Public Use
  Company Number: US-SA-SAC20231009000780

PATIENT
  Sex: Male

DRUGS (1)
  1. DUPIXENT [Suspect]
     Active Substance: DUPILUMAB
     Indication: Asthma
     Dosage: 300 MG, QOW
     Route: 058
     Dates: start: 202110

REACTIONS (2)
  - Visual impairment [Unknown]
  - Vision blurred [Unknown]

NARRATIVE: CASE EVENT DATE: 20230101
